FAERS Safety Report 4548884-0 (Version None)
Quarter: 2004Q4

REPORT INFORMATION
  Report Type: 
  Country: None (occurrence: None)
  Receive Date: 20041227
  Receipt Date: 20041122
  Transmission Date: 20050328
  Serious: No
  Sender: FDA-Public Use
  Company Number: 04P-163-0281430

PATIENT
  Age: 50 Year
  Sex: Female
  Weight: 76.2043 kg

DRUGS (11)
  1. HUMIRA [Suspect]
     Indication: RHEUMATOID ARTHRITIS
     Dosage: 40 MG, 1 IN 2 WK, SUBCUTANEOUS
     Route: 058
     Dates: start: 20031101
  2. ATENOLOL [Concomitant]
  3. DILTIAZEM HYDROCHLORIDE [Concomitant]
  4. IRBESARTAN [Concomitant]
  5. METHOTREXATE [Concomitant]
  6. CALCIUM WITH VITAMIN D [Concomitant]
  7. LANSOPRAZOLE [Concomitant]
  8. FOLIC ACID [Concomitant]
  9. RISEDRONATE SODIUM [Concomitant]
  10. ATORVASTATIN [Concomitant]
  11. ASPIRIN [Concomitant]

REACTIONS (2)
  - PRURITUS [None]
  - UPPER RESPIRATORY TRACT INFECTION [None]
